FAERS Safety Report 10241170 (Version 1)
Quarter: 2014Q2

REPORT INFORMATION
  Report Type: Spontaneous
  Country: US (occurrence: US)
  Receive Date: 20140617
  Receipt Date: 20140617
  Transmission Date: 20141212
  Serious: No
  Sender: FDA-Public Use
  Company Number: US-PFIZER INC-2014166125

PATIENT
  Age: 45 Year
  Sex: Male
  Weight: 96.15 kg

DRUGS (13)
  1. LYRICA [Suspect]
     Indication: FIBROMYALGIA
     Dosage: 75 MG, 3X/DAY
     Route: 048
     Dates: end: 20140507
  2. LYRICA [Suspect]
     Dosage: 75 MG, 2X/DAY
     Route: 048
     Dates: start: 20140508
  3. FUROSEMIDE [Concomitant]
     Indication: PERIPHERAL SWELLING
     Dosage: 20 MG, 1X/DAY
  4. CYCLOBENZAPRINE [Concomitant]
     Dosage: 10 MG, 3X/DAY
  5. DIAZEPAM [Concomitant]
     Indication: ANXIETY
     Dosage: 10 MG, 3X/DAY
  6. NEXIUM [Concomitant]
     Indication: GASTROOESOPHAGEAL REFLUX DISEASE
     Dosage: 40 MG, 1X/DAY
  7. SEROQUEL XR [Concomitant]
     Dosage: 15 MG, 1X/DAY
  8. FENOFIBRATE [Concomitant]
     Dosage: 160 MG, 1X/DAY
  9. ASPIRIN [Concomitant]
     Indication: ANTICOAGULANT THERAPY
     Dosage: 81 MG, 2X/DAY
  10. ARICEPT [Concomitant]
     Indication: DEMENTIA ALZHEIMER^S TYPE
     Dosage: 5 MG, 3X/DAY
  11. CARVEDILOL [Concomitant]
     Indication: HYPERTENSIVE HEART DISEASE
     Dosage: 625 MG, 2X/DAY
  12. ATORVASTATIN [Concomitant]
     Indication: BLOOD CHOLESTEROL INCREASED
     Dosage: 40 MG, 1X/DAY
  13. MOBIC [Concomitant]
     Indication: ARTHRITIS
     Dosage: 15 MG, 1X/DAY

REACTIONS (1)
  - Pain [Not Recovered/Not Resolved]
